FAERS Safety Report 25699043 (Version 4)
Quarter: 2025Q3

REPORT INFORMATION
  Report Type: Report from Study
  Country: US (occurrence: US)
  Receive Date: 20250819
  Receipt Date: 20250930
  Transmission Date: 20251021
  Serious: No
  Sender: ACADIA PHARMACEUTICALS
  Company Number: US-ACADIA PHARMACEUTICALS INC.-ACA-2025-TRF-009228

PATIENT
  Sex: Female
  Weight: 69 kg

DRUGS (9)
  1. DAYBUE [Suspect]
     Active Substance: TROFINETIDE
     Indication: Rett syndrome
     Dosage: 60 MILLILITER, BID (G-TUBE)
     Dates: start: 202405
  2. KEPPRA [Concomitant]
     Active Substance: LEVETIRACETAM
  3. GABAPENTIN [Concomitant]
     Active Substance: GABAPENTIN
  4. RAMELTEON [Concomitant]
     Active Substance: RAMELTEON
  5. CLONIDINE [Concomitant]
     Active Substance: CLONIDINE
  6. FLUOXETINE [Concomitant]
     Active Substance: FLUOXETINE HYDROCHLORIDE
  7. BACLOFEN [Concomitant]
     Active Substance: BACLOFEN
  8. GLYCOPYRROLATE [Concomitant]
     Active Substance: GLYCOPYRROLATE
  9. ETHINYL ESTRADIOL\NORETHINDRONE [Concomitant]
     Active Substance: ETHINYL ESTRADIOL\NORETHINDRONE

REACTIONS (1)
  - Diarrhoea [Not Recovered/Not Resolved]
